FAERS Safety Report 14690152 (Version 1)
Quarter: 2018Q1

REPORT INFORMATION
  Report Type: Spontaneous
  Country: GB (occurrence: GB)
  Receive Date: 20180328
  Receipt Date: 20180328
  Transmission Date: 20180509
  Serious: Yes (Disabling)
  Sender: FDA-Public Use
  Company Number: GB-TEVA-2018-GB-875595

PATIENT
  Age: 73 Year
  Sex: Female
  Weight: 82 kg

DRUGS (12)
  1. DOXAZOSIN [Concomitant]
     Active Substance: DOXAZOSIN\DOXAZOSIN MESYLATE
     Indication: HYPERTENSION
     Dosage: 1 DOSAGE FORMS DAILY; EACH MORNING
     Route: 065
  2. AMLODIPINE [Concomitant]
     Active Substance: AMLODIPINE BESYLATE
     Indication: HYPERTENSION
     Dosage: 1 DOSAGE FORMS DAILY; EACH MORNING
     Route: 065
  3. PREGABALIN. [Concomitant]
     Active Substance: PREGABALIN
     Dosage: 1 DOSAGE FORMS DAILY;
     Route: 065
  4. ACIDEX [Concomitant]
     Active Substance: CALCIUM CARBONATE\SODIUM ALGINATE\SODIUM BICARBONATE
     Route: 065
  5. ZOPICLONE [Concomitant]
     Active Substance: ZOPICLONE
     Dosage: TAKE ONE-TWO AT NIGHT FOR OCCASIONAL USE
     Route: 065
  6. LOSARTAN. [Concomitant]
     Active Substance: LOSARTAN
     Indication: HYPERTENSION
     Dosage: 1 DOSAGE FORMS DAILY; EACH MORNING
     Route: 065
  7. FELDENE [Concomitant]
     Active Substance: PIROXICAM
     Indication: ARTHRALGIA
     Dosage: 3 DOSAGE FORMS DAILY;
     Route: 065
  8. ESOMEPRAZOLE [Concomitant]
     Active Substance: ESOMEPRAZOLE
     Indication: GASTROOESOPHAGEAL REFLUX DISEASE
     Dosage: 2 DOSAGE FORMS DAILY;
     Route: 065
  9. PRAMIPEXOLE. [Suspect]
     Active Substance: PRAMIPEXOLE
     Route: 065
  10. ATORVASTATIN [Concomitant]
     Active Substance: ATORVASTATIN
     Indication: HYPERCHOLESTEROLAEMIA
     Dosage: 1 DOSAGE FORMS DAILY;
     Route: 065
  11. PARACETAMOL [Concomitant]
     Active Substance: ACETAMINOPHEN
     Dosage: 8 DOSAGE FORMS DAILY;
     Route: 065
  12. ROPINIROLE. [Concomitant]
     Active Substance: ROPINIROLE
     Dosage: 1 DOSAGE FORMS DAILY;
     Route: 065

REACTIONS (3)
  - Abdominal pain upper [Recovered/Resolved]
  - Dyspepsia [Recovered/Resolved]
  - Decreased appetite [Recovered/Resolved]
